FAERS Safety Report 4649828-3 (Version None)
Quarter: 2005Q2

REPORT INFORMATION
  Report Type: 
  Country: None (occurrence: None)
  Receive Date: 20050428
  Receipt Date: 20050425
  Transmission Date: 20051028
  Serious: Yes (Life-Threatening)
  Sender: FDA-Public Use
  Company Number: OSCN-GE-0504S-0108

PATIENT
  Age: 63 Year
  Sex: Female
  Weight: 74 kg

DRUGS (1)
  1. OMNISCAN [Suspect]
     Indication: BRAIN NEOPLASM
     Dosage: 15 ML, I.V.
     Route: 042
     Dates: start: 20050418, end: 20050418

REACTIONS (3)
  - ASTHMA [None]
  - CONDITION AGGRAVATED [None]
  - PANIC REACTION [None]
